FAERS Safety Report 11183058 (Version 1)
Quarter: 2015Q2

REPORT INFORMATION
  Report Type: Spontaneous
  Country: US (occurrence: US)
  Receive Date: 20150611
  Receipt Date: 20150611
  Transmission Date: 20150821
  Serious: Yes (Other)
  Sender: FDA-Public Use
  Company Number: US-B.I. PHARMACEUTICALS,INC./RIDGEFIELD-2015-BI-29722BP

PATIENT
  Age: 19 Week

DRUGS (1)
  1. DULCOLAX [Suspect]
     Active Substance: BISACODYL OR DOCUSATE SODIUM
     Indication: EXPOSURE DURING PREGNANCY
     Route: 064
     Dates: start: 201503

REACTIONS (1)
  - Congenital cystic kidney disease [Not Recovered/Not Resolved]

NARRATIVE: CASE EVENT DATE: 20150504
